FAERS Safety Report 18762419 (Version 1)
Quarter: 2021Q1

REPORT INFORMATION
  Report Type: Spontaneous
  Country: JP (occurrence: JP)
  Receive Date: 20210120
  Receipt Date: 20210120
  Transmission Date: 20210419
  Serious: Yes (Death, Congenital Anomaly)
  Sender: FDA-Public Use
  Company Number: JP-ROCHE-2753046

PATIENT
  Age: 9 Decade
  Sex: Male

DRUGS (1)
  1. ACTEMRA [Suspect]
     Active Substance: TOCILIZUMAB
     Indication: COVID-19
     Route: 041

REACTIONS (3)
  - Intentional product use issue [Unknown]
  - Off label use [Unknown]
  - Disease progression [Fatal]
